FAERS Safety Report 5380669-8 (Version None)
Quarter: 2007Q3

REPORT INFORMATION
  Report Type: 
  Country: None (occurrence: None)
  Receive Date: 20070706
  Receipt Date: 20070627
  Transmission Date: 20080115
  Serious: Yes (Hospitalization, Other)
  Sender: FDA-Public Use
  Company Number: FI-ROCHE-494798

PATIENT
  Age: 84 Year
  Sex: Female

DRUGS (17)
  1. BONIVA [Suspect]
     Indication: OSTEOPOROSIS
     Dosage: STRENGTH REPORTED AS 3MG/3ML; FORMULATION REPORTED AS INFUSION.
     Route: 042
     Dates: start: 20070206, end: 20070206
  2. MAREVAN [Concomitant]
     Indication: ATRIAL FIBRILLATION
  3. DIGOXIN MITE [Concomitant]
     Dosage: STRENGTH REPORTED: 0.0625 MG. DOSAGE REGIMEN: 1 X 2
     Route: 048
  4. FURESIS [Concomitant]
     Dosage: DOSAGE REGIMEN: 1+1/2 /DAY
     Route: 048
  5. SPIRESIS [Concomitant]
     Dosage: DOSAGE: 1/2 X 1
     Route: 048
  6. BISOPROLOL [Concomitant]
     Dosage: DOSAGE: 10 MG X 2
  7. PREDNISOLONE [Concomitant]
     Dosage: DOSAGE: 7.5 MG X 1
  8. MIACALCIN [Concomitant]
     Dosage: GENERIC NAME: CALCITONIN, DOSAGE: X1
  9. PANACOD [Concomitant]
     Dosage: DOSAGE: X3
  10. ELECTROLYTES [Concomitant]
     Dosage: DRUG NAME: COLONSOFT. DOSAGE: X 1-2
  11. IMOVANE [Concomitant]
     Dosage: DOSAGE: 7.5 MG X1
  12. MIRTAZAPINE [Concomitant]
     Dosage: DOSAGE: 15 MG X1
  13. OMEPRAZOLE [Concomitant]
     Dosage: DOSAGE: 10 MG X1
  14. CUPLATON [Concomitant]
     Dosage: DOSAGE: X1
  15. KALCIPOS D [Concomitant]
     Dosage: DOSAGE: 2+1
  16. XALCOM [Concomitant]
     Dosage: DOSAGE: X1. REPORTED AS EYE DROPS FOR THE RIGHT EYE.
  17. XALATAN [Concomitant]
     Dosage: REPORTED AS EYE DROPS FOR THE LEFT EYE. DOSAGE: X1

REACTIONS (3)
  - ANAPHYLACTOID REACTION [None]
  - FACE OEDEMA [None]
  - WHEEZING [None]
